FAERS Safety Report 8473900-3 (Version None)
Quarter: 2012Q2

REPORT INFORMATION
  Report Type: 
  Country: None (occurrence: None)
  Receive Date: 20120628
  Receipt Date: 20120608
  Transmission Date: 20120825
  Serious: Yes (Other)
  Sender: FDA-Public Use
  Company Number: US-MYLANLABS-2012S1001548

PATIENT
  Age: 56 Year
  Sex: Male

DRUGS (8)
  1. LEVOTHYROXINE [Concomitant]
     Route: 048
  2. LACTULOSE [Concomitant]
     Route: 048
  3. TRILEPTAL [Concomitant]
     Route: 048
  4. CLOZAPINE [Suspect]
     Route: 048
     Dates: start: 20120121
  5. VITAMIN D [Concomitant]
  6. SIMVASTATIN [Concomitant]
     Route: 048
  7. COLACE [Concomitant]
  8. CLOZAPINE [Suspect]
     Route: 048
     Dates: end: 20120118

REACTIONS (2)
  - GRANULOCYTOPENIA [None]
  - LEUKOPENIA [None]
